FAERS Safety Report 5326945-6 (Version None)
Quarter: 2007Q2

REPORT INFORMATION
  Report Type: 
  Country: None (occurrence: None)
  Receive Date: 20070511
  Receipt Date: 20070507
  Transmission Date: 20071010
  Serious: Yes (Hospitalization)
  Sender: FDA-Public Use
  Company Number: 2007SP008745

PATIENT
  Age: 63 Year
  Sex: Female
  Weight: 65 kg

DRUGS (2)
  1. TEMOZOLOMIDE (S-P) [Suspect]
     Indication: GLIOBLASTOMA MULTIFORME
     Dosage: 170 MG; QD; PO
     Route: 048
     Dates: start: 20070403, end: 20070423
  2. DECADRON [Suspect]
     Indication: GLIOBLASTOMA MULTIFORME

REACTIONS (11)
  - ASTHENIA [None]
  - BLOOD GLUCOSE INCREASED [None]
  - CONVULSION [None]
  - DEHYDRATION [None]
  - HYPERGLYCAEMIA [None]
  - HYPOALBUMINAEMIA [None]
  - HYPOKALAEMIA [None]
  - HYPOTENSION [None]
  - NAUSEA [None]
  - VOMITING [None]
  - WEIGHT DECREASED [None]
